FAERS Safety Report 18620689 (Version 1)
Quarter: 2020Q4

REPORT INFORMATION
  Report Type: Spontaneous
  Country: US (occurrence: US)
  Receive Date: 20201215
  Receipt Date: 20201215
  Transmission Date: 20210114
  Serious: Yes (Other)
  Sender: FDA-Public Use
  Company Number: US-BRISTOL-MYERS SQUIBB COMPANY-BMS-2020-105427

PATIENT
  Sex: Female
  Weight: 54 kg

DRUGS (1)
  1. WARFARIN SODIUM. [Suspect]
     Active Substance: WARFARIN SODIUM
     Indication: PRODUCT USED FOR UNKNOWN INDICATION
     Dosage: UNK
     Route: 065

REACTIONS (7)
  - Headache [Unknown]
  - Eye pain [Unknown]
  - International normalised ratio increased [Unknown]
  - Back pain [Unknown]
  - Neuralgia [Unknown]
  - Drug ineffective [Unknown]
  - Visual impairment [Unknown]
